FAERS Safety Report 4624308-X (Version None)
Quarter: 2005Q1

REPORT INFORMATION
  Report Type: 
  Country: None (occurrence: None)
  Receive Date: 20050331
  Receipt Date: 20040402
  Transmission Date: 20050727
  Serious: Yes (Death, Hospitalization, Disabling, Other)
  Sender: FDA-Public Use
  Company Number: JP-ABBOTT-04P-087-0256489-00

PATIENT
  Sex: Male

DRUGS (12)
  1. KALETRA [Suspect]
     Indication: HIV INFECTION
     Route: 048
     Dates: start: 20021220, end: 20030120
  2. LAMIVUDINE [Concomitant]
     Indication: HIV INFECTION
     Route: 048
     Dates: start: 20021220, end: 20030120
  3. LAMIVUDINE [Concomitant]
     Route: 048
     Dates: start: 20030222, end: 20030314
  4. DIDANOSINE [Concomitant]
     Indication: HIV INFECTION
     Route: 048
     Dates: start: 20021220, end: 20030120
  5. DIDANOSINE [Concomitant]
     Route: 048
     Dates: start: 20030222, end: 20030314
  6. NELFINAVIR [Concomitant]
     Indication: HIV INFECTION
     Route: 048
     Dates: start: 20030222, end: 20030314
  7. AZITHROMYCIN HYDRATE [Concomitant]
     Indication: INFECTION PROPHYLAXIS
     Route: 048
     Dates: start: 20021208, end: 20030108
  8. BACTRIM [Concomitant]
     Indication: INFECTION PROPHYLAXIS
     Route: 048
     Dates: start: 20021217, end: 20030113
  9. BACTRIM [Concomitant]
     Route: 048
     Dates: start: 20030203, end: 20030218
  10. PENTAMIDINE ISETHIONATE [Concomitant]
     Indication: INFECTION PROPHYLAXIS
     Route: 042
     Dates: start: 20021210, end: 20021210
  11. ACYCLOVIR [Concomitant]
     Indication: ANTIVIRAL PROPHYLAXIS
     Dates: start: 20021227, end: 20030106
  12. IMMUNE GLOBULIN INTRAVENOUS (HUMAN) [Concomitant]
     Indication: IDIOPATHIC THROMBOCYTOPENIC PURPURA
     Dates: start: 20030122, end: 20030123

REACTIONS (9)
  - ANAEMIA [None]
  - BRADYCARDIA [None]
  - CONDITION AGGRAVATED [None]
  - DISSEMINATED INTRAVASCULAR COAGULATION [None]
  - DYSPHAGIA [None]
  - LEUKOPENIA [None]
  - LYMPHOMA [None]
  - RESPIRATORY DISORDER [None]
  - VASCULAR INSUFFICIENCY [None]
